FAERS Safety Report 19595146 (Version 1)
Quarter: 2021Q3

REPORT INFORMATION
  Report Type: Spontaneous
  Country: US (occurrence: US)
  Receive Date: 20210722
  Receipt Date: 20210722
  Transmission Date: 20211014
  Serious: No
  Sender: FDA-Public Use
  Company Number: US-PFIZER INC-2021450977

PATIENT
  Age: 64 Year
  Sex: Female
  Weight: 93.42 kg

DRUGS (12)
  1. IBRANCE [Suspect]
     Active Substance: PALBOCICLIB
     Indication: BREAST NEOPLASM
     Dosage: 125 MG, DAILY FOR 21 DAYS
     Route: 048
  2. LAPACHO [Concomitant]
     Dosage: UNK
  3. CAT^S CLAW [Concomitant]
     Active Substance: CAT^S CLAW
     Dosage: UNK
  4. METOPROLOL SUCCINATE. [Concomitant]
     Active Substance: METOPROLOL SUCCINATE
     Dosage: UNK
  5. SANICULA EUROPAEA [Concomitant]
     Dosage: UNK
  6. BERBERINE [Concomitant]
     Active Substance: BERBERINE
     Dosage: UNK
  7. ASPIRIN [ACETYLSALICYLIC ACID] [Concomitant]
     Active Substance: ASPIRIN
     Dosage: UNK
  8. APRICOT KERNEL WATER [Concomitant]
     Active Substance: HERBALS
     Dosage: UNK
  9. CLARITIN [Concomitant]
     Active Substance: LORATADINE
     Dosage: UNK
  10. RED CLOVER [TRIFOLIUM PRATENSE] [Concomitant]
     Dosage: UNK
  11. MILK THISTLE [Concomitant]
     Active Substance: DIETARY SUPPLEMENT\HERBALS\MILK THISTLE
     Dosage: UNK
  12. NALTREXONE [Concomitant]
     Active Substance: NALTREXONE
     Dosage: UNK

REACTIONS (1)
  - Hepatic enzyme increased [Unknown]
